FAERS Safety Report 23153346 (Version 3)
Quarter: 2023Q4

REPORT INFORMATION
  Report Type: Spontaneous
  Country: US (occurrence: US)
  Receive Date: 20231107
  Receipt Date: 20231108
  Transmission Date: 20240110
  Serious: No
  Sender: FDA-Public Use
  Company Number: US-OPELLA-2023OHG011903

PATIENT

DRUGS (1)
  1. ICY HOT WITH LIDOCAINE [Suspect]
     Active Substance: LIDOCAINE\MENTHOL
     Dosage: DOSE: 2,96 G; 0,74 G/74 ML

REACTIONS (2)
  - Drug ineffective [Unknown]
  - No adverse event [Unknown]
